FAERS Safety Report 21227173 (Version 1)
Quarter: 2022Q3

REPORT INFORMATION
  Report Type: Spontaneous
  Country: US (occurrence: None)
  Receive Date: 20220817
  Receipt Date: 20220817
  Transmission Date: 20221026
  Serious: Yes (Other)
  Sender: FDA-Public Use
  Company Number: None

PATIENT
  Sex: Male
  Weight: 72 kg

DRUGS (21)
  1. XTANDI [Suspect]
     Active Substance: ENZALUTAMIDE
     Indication: Prostate cancer
     Dosage: FREQUENCY : DAILY;?
     Route: 048
     Dates: start: 20211026
  2. ACETAMINOPHEN [Concomitant]
     Active Substance: ACETAMINOPHEN
  3. ASPIRIN [Concomitant]
     Active Substance: ASPIRIN
  4. B complex vitamin [Concomitant]
  5. B12 fast dissolve [Concomitant]
  6. BICALUTAMIDE [Concomitant]
     Active Substance: BICALUTAMIDE
  7. diclofenac 1% external gel [Concomitant]
  8. Eligard 22.5 mg subq [Concomitant]
  9. FOLTRIN [Concomitant]
  10. hydrocortisone cream topical [Concomitant]
  11. hyoscyamine 0.125 mg [Concomitant]
  12. INVOKANA [Concomitant]
     Active Substance: CANAGLIFLOZIN
  13. irbesartan/hctz 300/12.5 [Concomitant]
  14. magnesium supplement 250 mg [Concomitant]
  15. Omega 3 supplement [Concomitant]
  16. Prandin 2 mg [Concomitant]
  17. ROSUVASTATIN [Concomitant]
     Active Substance: ROSUVASTATIN
  18. TOUJEO MAX [Concomitant]
     Active Substance: INSULIN GLARGINE
  19. VITAMIN C [Concomitant]
     Active Substance: ASCORBIC ACID
  20. VITAMIN D3 [Concomitant]
     Active Substance: CHOLECALCIFEROL
  21. ZOLMIPTRIPTAN [Concomitant]
     Active Substance: ZOLMITRIPTAN

REACTIONS (2)
  - Back pain [None]
  - Fatigue [None]
